FAERS Safety Report 6165166-4 (Version None)
Quarter: 2009Q2

REPORT INFORMATION
  Report Type: 
  Country: None (occurrence: None)
  Receive Date: 20090423
  Receipt Date: 20090414
  Transmission Date: 20091009
  Serious: Yes (Hospitalization, Other)
  Sender: FDA-Public Use
  Company Number: GB-TEVA-191706ISR

PATIENT
  Age: 48 Year

DRUGS (10)
  1. RAMIPRIL [Suspect]
  2. ACETYLSALICYLIC ACID [Suspect]
  3. DIDANOSINE [Suspect]
  4. EFAVIRENZ [Suspect]
  5. KALETRA [Suspect]
  6. LAMIVUDINE [Suspect]
  7. NELFINAVIR [Suspect]
  8. STAVUDINE [Suspect]
  9. TENOFOVIR [Suspect]
  10. ZIDOVUDINE [Suspect]

REACTIONS (2)
  - DRUG RESISTANCE [None]
  - MYOCARDIAL INFARCTION [None]
